FAERS Safety Report 5705985-9 (Version None)
Quarter: 2008Q2

REPORT INFORMATION
  Report Type: 
  Country: None (occurrence: None)
  Receive Date: 20080415
  Receipt Date: 20080408
  Transmission Date: 20081010
  Serious: Yes (Death, Hospitalization, Other)
  Sender: FDA-Public Use
  Company Number: DE-PFIZER INC-2007039770

PATIENT
  Age: 66 Year
  Sex: Male
  Weight: 117 kg

DRUGS (4)
  1. GENOTROPIN [Suspect]
     Indication: HYPOPITUITARISM
     Route: 058
     Dates: start: 19960425, end: 20070503
  2. HYDROCORTISONE [Concomitant]
     Dates: start: 19930501
  3. L-THYROXIN [Concomitant]
     Dosage: DAILY DOSE:150MG
     Dates: start: 19930501
  4. TESTOSTERONE [Concomitant]
     Dosage: DAILY DOSE:250MG
     Dates: start: 19930501

REACTIONS (1)
  - GLIOBLASTOMA [None]
